FAERS Safety Report 6926683-X (Version None)
Quarter: 2010Q3

REPORT INFORMATION
  Report Type: 
  Country: None (occurrence: None)
  Receive Date: 20100816
  Receipt Date: 20100603
  Transmission Date: 20110219
  Serious: No
  Sender: FDA-Public Use
  Company Number: US-ABBOTT-10P-163-0648753-00

PATIENT
  Sex: Male
  Weight: 95.34 kg

DRUGS (6)
  1. SIMCOR [Suspect]
     Indication: HIGH DENSITY LIPOPROTEIN ABNORMAL
     Dosage: 500/20MG QHS
     Dates: start: 20100501
  2. SIMCOR [Suspect]
     Indication: LOW DENSITY LIPOPROTEIN ABNORMAL
  3. SIMCOR [Suspect]
     Indication: BLOOD TRIGLYCERIDES ABNORMAL
  4. ASPIRIN [Concomitant]
     Indication: PRODUCT USED FOR UNKNOWN INDICATION
  5. XANAX [Concomitant]
     Indication: PRODUCT USED FOR UNKNOWN INDICATION
  6. MULTI-VITAMIN [Concomitant]
     Indication: PRODUCT USED FOR UNKNOWN INDICATION

REACTIONS (5)
  - ABNORMAL DREAMS [None]
  - AGITATION [None]
  - FEELING HOT [None]
  - SKIN BURNING SENSATION [None]
  - SKIN IRRITATION [None]
